FAERS Safety Report 21239190 (Version 2)
Quarter: 2022Q3

REPORT INFORMATION
  Report Type: Spontaneous
  Country: US (occurrence: US)
  Receive Date: 20220822
  Receipt Date: 20220916
  Transmission Date: 20221027
  Serious: Yes (Other)
  Sender: FDA-Public Use
  Company Number: US-BAYER-2022A114007

PATIENT
  Age: 20 Year
  Sex: Male

DRUGS (2)
  1. JIVI [Suspect]
     Active Substance: DAMOCTOCOG ALFA PEGOL
     Indication: Factor VIII deficiency
     Dosage: 3000 IU EVERY THIRD DAY
     Route: 042
     Dates: start: 201905
  2. JIVI [Suspect]
     Active Substance: DAMOCTOCOG ALFA PEGOL
     Indication: Factor VIII deficiency
     Dosage: 3000 IU EVERY THIRD DAY
     Route: 042
     Dates: start: 201905

REACTIONS (3)
  - Haemarthrosis [None]
  - Haemorrhage [None]
  - Haemarthrosis [Not Recovered/Not Resolved]
